FAERS Safety Report 7225833-8 (Version None)
Quarter: 2011Q1

REPORT INFORMATION
  Report Type: 
  Country: None (occurrence: None)
  Receive Date: 20110113
  Receipt Date: 20110110
  Transmission Date: 20110831
  Serious: Yes (Hospitalization)
  Sender: FDA-Public Use
  Company Number: FR-PFIZER INC-2011007458

PATIENT
  Sex: Female

DRUGS (2)
  1. FARMORUBICINE [Suspect]
     Dosage: 180 MG, 1X/DAY
     Route: 042
     Dates: start: 20100920, end: 20100920
  2. ENDOXAN [Suspect]
     Dosage: 900 MG, 1X/DAY
     Route: 042
     Dates: start: 20101017, end: 20101017

REACTIONS (2)
  - DRUG EXPOSURE DURING PREGNANCY [None]
  - PRECIPITATE LABOUR [None]
